FAERS Safety Report 7189902-3 (Version None)
Quarter: 2010Q4

REPORT INFORMATION
  Report Type: 
  Country: None (occurrence: None)
  Receive Date: 20101223
  Receipt Date: 20101209
  Transmission Date: 20110411
  Serious: Yes (Death)
  Sender: FDA-Public Use
  Company Number: ES-RANBAXY-2010RR-40472

PATIENT

DRUGS (46)
  1. LEVOFLOXACIN [Suspect]
     Indication: PRODUCT USED FOR UNKNOWN INDICATION
     Route: 065
  2. CIPROFLOXACIN [Suspect]
     Route: 065
  3. METFORMIN [Suspect]
     Route: 065
  4. ENOXAPARIN SODIUM [Suspect]
     Route: 065
  5. FENTANYL-100 [Suspect]
     Route: 065
  6. ZOLPIDEM [Suspect]
     Route: 065
  7. CARVEDILOL [Suspect]
     Route: 065
  8. FUROSEMIDE [Suspect]
     Route: 065
  9. GLIBENCLAMIDE [Suspect]
     Route: 065
  10. ENALAPRIL MALEATE [Suspect]
     Route: 065
  11. AMOXICILLIN AND CLAVULANATE POTASSIUM [Suspect]
     Route: 065
  12. CEFTRIAXONE [Suspect]
     Route: 065
  13. PIPERACILLIN AND TAZOBACTAM [Suspect]
     Route: 065
  14. CHLOROQUINE [Suspect]
     Route: 065
  15. COLCHICINE [Suspect]
     Route: 065
  16. DIGOXIN [Suspect]
     Route: 065
  17. RIFAMPIN [Suspect]
     Route: 065
  18. VIBRAMYCIN [Suspect]
     Route: 065
  19. CEFTAZIDIME [Suspect]
     Route: 065
  20. SILDENAFIL [Suspect]
     Route: 065
  21. ACENOCOUMAROL [Suspect]
     Route: 065
  22. HEPARIN [Suspect]
     Route: 065
  23. TRAMADOL [Suspect]
     Route: 065
  24. LORAZEPAM [Suspect]
     Route: 065
  25. LITHIUM [Suspect]
     Route: 065
  26. IMIPENEM [Suspect]
     Route: 065
  27. PHENYTOIN [Suspect]
     Route: 065
  28. ATORVASTATIN [Suspect]
     Route: 065
  29. SULFAMETHOXAZOLE AND TRIMETHOPRIM [Suspect]
     Route: 065
  30. AUGMENTIN '125' [Suspect]
     Route: 065
  31. DEXKETOPROFEN [Suspect]
     Route: 065
  32. SALAZOPYRIN [Suspect]
  33. ETHINYL ESTRADIOL [Suspect]
     Route: 065
  34. METAMIZOLE [Suspect]
     Route: 065
  35. VANCOMYCIN [Suspect]
     Route: 065
  36. CAPTOPRIL [Suspect]
     Route: 065
  37. HYDROCHLOROTHIAZIDE [Suspect]
     Route: 065
  38. DULOXETIME HYDROCHLORIDE [Suspect]
     Route: 065
  39. SPIRONOLACTONE [Suspect]
     Route: 065
  40. DIAZEPAM [Suspect]
     Route: 065
  41. CLEBOPRIDE [Concomitant]
  42. LEVOMEPROMAZINE [Concomitant]
  43. PREGABALIN [Concomitant]
  44. CODEINE [Concomitant]
  45. MEROPENEM [Concomitant]
  46. BUDESONIDE [Concomitant]

REACTIONS (1)
  - DEATH [None]
